FAERS Safety Report 7368669-X (Version None)
Quarter: 2011Q1

REPORT INFORMATION
  Report Type: 
  Country: None (occurrence: None)
  Receive Date: 20110321
  Receipt Date: 20110321
  Transmission Date: 20110831
  Serious: No
  Sender: FDA-Public Use
  Company Number: None

PATIENT
  Age: 45 Year
  Sex: Female
  Weight: 85.8 kg

DRUGS (3)
  1. FENTANYL [Suspect]
     Indication: MIGRAINE
     Dosage: 100MCG/HR 1 Q 72 HOURS TRANSDERMAL
     Route: 062
     Dates: start: 20110128, end: 20110301
  2. FENTANYL [Suspect]
     Indication: MENINGITIS
     Dosage: 100MCG/HR 1 Q 72 HOURS TRANSDERMAL
     Route: 062
     Dates: start: 20110128, end: 20110301
  3. FENTANYL [Suspect]
     Indication: BACK PAIN
     Dosage: 100MCG/HR 1 Q 72 HOURS TRANSDERMAL
     Route: 062
     Dates: start: 20110128, end: 20110301

REACTIONS (4)
  - BREAKTHROUGH PAIN [None]
  - DEVICE LEAKAGE [None]
  - DRUG EFFECT DECREASED [None]
  - PRODUCT SUBSTITUTION ISSUE [None]
